FAERS Safety Report 19087542 (Version 1)
Quarter: 2021Q2

REPORT INFORMATION
  Report Type: Report from Study
  Country: JP (occurrence: JP)
  Receive Date: 20210402
  Receipt Date: 20210402
  Transmission Date: 20210717
  Serious: No
  Sender: FDA-Public Use
  Company Number: JP-ORPHANEU-2020000079

PATIENT

DRUGS (1)
  1. CARBAGLU [Suspect]
     Active Substance: CARGLUMIC ACID
     Indication: METHYLMALONIC ACIDURIA
     Dosage: 20 MILLIGRAM/KILOGRAM/DAY
     Route: 048
     Dates: start: 201810

REACTIONS (1)
  - No adverse event [Recovered/Resolved]
